FAERS Safety Report 10161221 (Version 2)
Quarter: 2014Q2

REPORT INFORMATION
  Report Type: Report from Study
  Country: US (occurrence: US)
  Receive Date: 20140508
  Receipt Date: 20140508
  Transmission Date: 20141212
  Serious: Yes (Other)
  Sender: FDA-Public Use
  Company Number: PHEH2014US000665

PATIENT
  Age: 56 Year
  Sex: Male
  Weight: 77.98 kg

DRUGS (6)
  1. GILENYA [Suspect]
     Indication: MULTIPLE SCLEROSIS
     Dosage: 1 DF, QD
     Route: 048
     Dates: start: 201104, end: 20130912
  2. GILENYA [Suspect]
     Route: 048
     Dates: start: 20140128
  3. HYDROCORTISON                           /CZE/ [Concomitant]
     Dosage: 0.5 %, UNK
     Route: 061
  4. PROVIGIL//MODAFINIL [Concomitant]
     Dosage: 200 MG, BID
     Route: 048
  5. MULTI-VIT [Concomitant]
     Indication: FATIGUE
     Dosage: 1 DF, QD
     Route: 048
     Dates: start: 20090930
  6. CIALIS [Concomitant]
     Dosage: 0.5 MG, PRN

REACTIONS (10)
  - Monocyte count decreased [Unknown]
  - Monocyte percentage decreased [Unknown]
  - Neutrophil count increased [Recovered/Resolved]
  - Low density lipoprotein increased [Unknown]
  - Mean platelet volume increased [Unknown]
  - Monocyte count increased [Unknown]
  - Anisocytosis [Unknown]
  - Full blood count abnormal [Unknown]
  - Lymphopenia [Recovered/Resolved]
  - Leukopenia [Unknown]
